FAERS Safety Report 10280229 (Version 1)
Quarter: 2014Q3

REPORT INFORMATION
  Report Type: Spontaneous
  Country: US (occurrence: None)
  Receive Date: 20140701
  Receipt Date: 20140701
  Transmission Date: 20150326
  Serious: No
  Sender: FDA-Public Use
  Company Number: None

PATIENT
  Age: 50 Year
  Sex: Male
  Weight: 95.26 kg

DRUGS (3)
  1. DULOXETINE 30MG [Suspect]
     Active Substance: DULOXETINE
     Indication: DEPRESSION
     Route: 048
     Dates: start: 20140203, end: 20140404
  2. DULOXETINE 30MG [Suspect]
     Active Substance: DULOXETINE
     Indication: FIBROMYALGIA
     Route: 048
     Dates: start: 20140203, end: 20140404
  3. DULOXETINE 30MG [Suspect]
     Active Substance: DULOXETINE
     Indication: CHRONIC FATIGUE SYNDROME
     Route: 048
     Dates: start: 20140203, end: 20140404

REACTIONS (5)
  - Asthenia [None]
  - Product substitution issue [None]
  - Insomnia [None]
  - Pain [None]
  - Major depression [None]

NARRATIVE: CASE EVENT DATE: 20140207
